FAERS Safety Report 4368497-3 (Version None)
Quarter: 2004Q2

REPORT INFORMATION
  Report Type: 
  Country: None (occurrence: None)
  Receive Date: 20040602
  Receipt Date: 20031124
  Transmission Date: 20050107
  Serious: No
  Sender: FDA-Public Use
  Company Number: US-GLAXOSMITHKLINE-A0441040A

PATIENT
  Age: 3 Month
  Sex: Female
  Weight: 7.3 kg

DRUGS (1)
  1. AUGMENTIN [Suspect]
     Indication: EAR INFECTION
     Dosage: 600MG TWICE PER DAY
     Route: 048
     Dates: start: 20031104, end: 20031113

REACTIONS (3)
  - DIARRHOEA [None]
  - MEDICATION ERROR [None]
  - OVERDOSE [None]
